FAERS Safety Report 8075277-4 (Version None)
Quarter: 2012Q1

REPORT INFORMATION
  Report Type: 
  Country: None (occurrence: None)
  Receive Date: 20120127
  Receipt Date: 20120125
  Transmission Date: 20120608
  Serious: Yes (Other)
  Sender: FDA-Public Use
  Company Number: CA-BAYER-2012-008311

PATIENT
  Age: 45 Year
  Sex: Female

DRUGS (1)
  1. NEXAVAR [Suspect]
     Indication: ACUTE MYELOID LEUKAEMIA
     Dosage: UNK
     Dates: start: 20110101

REACTIONS (1)
  - CARDIOMYOPATHY [None]
